FAERS Safety Report 20897248 (Version 1)
Quarter: 2022Q2

REPORT INFORMATION
  Report Type: Spontaneous
  Country: US (occurrence: US)
  Receive Date: 20220531
  Receipt Date: 20220531
  Transmission Date: 20220720
  Serious: Yes (Other)
  Sender: FDA-Public Use
  Company Number: US-PFIZER INC-202200759892

PATIENT
  Age: 63 Year
  Sex: Male

DRUGS (3)
  1. PAXLOVID [Suspect]
     Active Substance: NIRMATRELVIR\RITONAVIR
     Indication: COVID-19 treatment
     Dosage: [PF-07321332 150 MG]/[RITONAVIR 100 MG]; 2X/DAY (1 PINK AND 1 WHITE)
     Dates: start: 20220513, end: 20220518
  2. MUCINEX [Concomitant]
     Active Substance: GUAIFENESIN
     Dosage: UNK
  3. TYLENOL [Concomitant]
     Active Substance: ACETAMINOPHEN
     Dosage: UNK

REACTIONS (8)
  - Pertussis [Unknown]
  - Therapeutic product effect incomplete [Unknown]
  - Cough [Unknown]
  - Throat irritation [Unknown]
  - Nasal discharge discolouration [Unknown]
  - Productive cough [Unknown]
  - Infection [Unknown]
  - Hypersensitivity [Unknown]
